FAERS Safety Report 8849862 (Version 2)
Quarter: 2012Q4

REPORT INFORMATION
  Report Type: Report from Study
  Country: DE (occurrence: DE)
  Receive Date: 20121019
  Receipt Date: 20121024
  Transmission Date: 20130627
  Serious: Yes (Hospitalization)
  Sender: FDA-Public Use
  Company Number: DE-ROCHE-1146853

PATIENT
  Age: 65 Year
  Sex: Female
  Weight: 69 kg

DRUGS (6)
  1. BEVACIZUMAB [Suspect]
     Indication: OVARIAN CANCER
     Dosage: last dose prior to the event : 01/Oct/2012
     Route: 042
     Dates: start: 20120709
  2. CARBOPLATIN [Concomitant]
     Indication: OVARIAN CANCER
     Dosage: last dose prior to the event : 01/Oct/2012
     Route: 042
     Dates: start: 20120618
  3. PACLITAXEL [Concomitant]
     Indication: OVARIAN CANCER
     Dosage: last dose prior to the event : 01/Oct/2012
     Route: 042
     Dates: start: 20120618
  4. METOPROLOL [Concomitant]
     Indication: HYPERTENSION
     Dosage: last dose prior to the event : 09/Oct/2012
     Route: 048
     Dates: start: 2004
  5. TAMBOCOR [Concomitant]
     Indication: HYPERTENSION
     Dosage: last dose prior to the event : 09/Oct/2012
     Route: 048
  6. FRAXIPARINE [Concomitant]
     Indication: PROPHYLAXIS
     Dosage: last dose prior to the event : 09/Oct/2012
     Route: 058

REACTIONS (1)
  - Herpes zoster oticus [Recovered/Resolved]
